FAERS Safety Report 22300235 (Version 9)
Quarter: 2025Q1

REPORT INFORMATION
  Report Type: Report from Study
  Country: US (occurrence: US)
  Receive Date: 20230509
  Receipt Date: 20250218
  Transmission Date: 20250408
  Serious: Yes (Hospitalization, Other)
  Sender: NOVARTIS
  Company Number: US-002147023-NVSC2023US101070

PATIENT
  Age: 51 Year
  Sex: Female

DRUGS (1)
  1. KESIMPTA [Suspect]
     Active Substance: OFATUMUMAB
     Indication: Relapsing multiple sclerosis
     Dosage: 20 MG, QMO
     Route: 058
     Dates: start: 20230501

REACTIONS (15)
  - Renal aneurysm [Recovered/Resolved with Sequelae]
  - Retinal detachment [Unknown]
  - Blindness [Recovered/Resolved with Sequelae]
  - Choking [Unknown]
  - Throat clearing [Unknown]
  - Symptom recurrence [Unknown]
  - Vision blurred [Unknown]
  - Eye disorder [Recovered/Resolved with Sequelae]
  - Blood pressure fluctuation [Not Recovered/Not Resolved]
  - Condition aggravated [Not Recovered/Not Resolved]
  - Cough [Unknown]
  - Headache [Unknown]
  - Influenza [Unknown]
  - Upper respiratory tract infection [Unknown]
  - Malaise [Unknown]

NARRATIVE: CASE EVENT DATE: 20230502
